FAERS Safety Report 20152238 (Version 3)
Quarter: 2022Q1

REPORT INFORMATION
  Report Type: Spontaneous
  Country: AU (occurrence: AU)
  Receive Date: 20211206
  Receipt Date: 20220312
  Transmission Date: 20220423
  Serious: Yes (Hospitalization)
  Sender: FDA-Public Use
  Company Number: AU-CELGENE-AUS-20211200066

PATIENT
  Age: 83 Year
  Sex: Male
  Weight: 103 kg

DRUGS (24)
  1. AZACITIDINE [Suspect]
     Active Substance: AZACITIDINE
     Indication: Myelodysplastic syndrome
     Dosage: FOR 7 DAYS WITHIN THE FIRST 9 CALENDAR DAYS OF EACH 28-DAY
     Route: 058
     Dates: start: 20211115, end: 20211117
  2. AZACITIDINE [Suspect]
     Active Substance: AZACITIDINE
     Dosage: FOR 7 DAYS WITHIN THE FIRST 9 CALENDAR DAYS OF EACH 28-DAY
     Route: 058
     Dates: start: 20211122, end: 20211122
  3. VENETOCLAX [Suspect]
     Active Substance: VENETOCLAX
     Indication: Myelodysplastic syndrome
     Route: 048
     Dates: start: 20211115, end: 20211118
  4. VENETOCLAX [Suspect]
     Active Substance: VENETOCLAX
     Route: 048
     Dates: start: 20211122, end: 20211122
  5. ALLOPURINOL [Concomitant]
     Active Substance: ALLOPURINOL
     Indication: Gout
     Dosage: 150 MILLIGRAM
     Route: 065
     Dates: start: 2016, end: 20211103
  6. ALLOPURINOL [Concomitant]
     Active Substance: ALLOPURINOL
     Dosage: 300 MILLIGRAM
     Route: 065
     Dates: start: 20161104
  7. TWYNSTA [Concomitant]
     Active Substance: AMLODIPINE BESYLATE\TELMISARTAN
     Indication: Hypertension
     Dosage: 2.5 MILLIGRAM
     Route: 048
     Dates: start: 2016, end: 20211118
  8. TWYNSTA [Concomitant]
     Active Substance: AMLODIPINE BESYLATE\TELMISARTAN
     Dosage: 2.5 MILLIGRAM
     Route: 048
     Dates: start: 20211126
  9. CLOPIDOGREL [Concomitant]
     Active Substance: CLOPIDOGREL BISULFATE
     Indication: Anticoagulant therapy
     Dosage: 75 MILLIGRAM
     Route: 048
     Dates: start: 2019, end: 20211117
  10. CLOPIDOGREL [Concomitant]
     Active Substance: CLOPIDOGREL BISULFATE
     Indication: Prophylaxis
     Dosage: 75 MILLIGRAM
     Route: 048
     Dates: start: 20211119, end: 20211122
  11. CLOPIDOGREL [Concomitant]
     Active Substance: CLOPIDOGREL BISULFATE
     Indication: Thrombosis prophylaxis
  12. PANTOPRAZOLE SODIUM [Concomitant]
     Active Substance: PANTOPRAZOLE SODIUM
     Indication: Gastrooesophageal reflux disease
     Dosage: 40 MILLIGRAM
     Route: 048
     Dates: start: 2015, end: 20211117
  13. PANTOPRAZOLE SODIUM [Concomitant]
     Active Substance: PANTOPRAZOLE SODIUM
     Dosage: 40 MILLIGRAM
     Route: 048
     Dates: start: 20211119
  14. LATANOPROST [Concomitant]
     Active Substance: LATANOPROST
     Indication: Glaucoma
     Dosage: .005 PERCENT
     Route: 031
     Dates: start: 2006, end: 20211117
  15. LATANOPROST [Concomitant]
     Active Substance: LATANOPROST
     Dosage: .005 PERCENT
     Route: 031
     Dates: start: 20211119, end: 20211124
  16. LATANOPROST [Concomitant]
     Active Substance: LATANOPROST
     Dosage: .005 PERCENT
     Route: 031
     Dates: start: 20211126
  17. Coloxyl [Concomitant]
     Indication: Constipation
     Dosage: AS REQUIRED
     Route: 048
     Dates: start: 2013, end: 20211116
  18. POSACONAZOLE [Concomitant]
     Active Substance: POSACONAZOLE
     Indication: Antifungal prophylaxis
     Dosage: 300 MILLIGRAM
     Route: 048
     Dates: start: 20211115, end: 20211118
  19. POSACONAZOLE [Concomitant]
     Active Substance: POSACONAZOLE
     Dosage: 300 MILLIGRAM
     Route: 048
     Dates: start: 20211123
  20. ONDANSETRON [Concomitant]
     Active Substance: ONDANSETRON
     Indication: Nausea
     Dosage: 4 MILLIGRAM
     Route: 048
     Dates: start: 20211115, end: 20211117
  21. ONDANSETRON [Concomitant]
     Active Substance: ONDANSETRON
     Indication: Vomiting
     Dosage: 300 MILLIGRAM
     Route: 048
     Dates: start: 20211123
  22. MACU VISION [Concomitant]
     Indication: Eye disorder
     Route: 048
     Dates: start: 2019, end: 20211118
  23. EZETIMIBE\ROSUVASTATIN [Concomitant]
     Active Substance: EZETIMIBE\ROSUVASTATIN
     Indication: Blood cholesterol
     Dosage: 10 MG
     Route: 048
     Dates: start: 2019, end: 20211117
  24. EZETIMIBE\ROSUVASTATIN [Concomitant]
     Active Substance: EZETIMIBE\ROSUVASTATIN
     Dosage: 10 MG
     Route: 048
     Dates: start: 20211126

REACTIONS (2)
  - Colitis [Not Recovered/Not Resolved]
  - Acute kidney injury [Recovered/Resolved]

NARRATIVE: CASE EVENT DATE: 20211118
